FAERS Safety Report 5190089-7 (Version None)
Quarter: 2006Q4

REPORT INFORMATION
  Report Type: 
  Country: None (occurrence: None)
  Receive Date: 20061222
  Receipt Date: 20061214
  Transmission Date: 20070319
  Serious: Yes (Life-Threatening, Hospitalization)
  Sender: FDA-Public Use
  Company Number: US-JNJFOC-20061205115

PATIENT
  Age: 28 Year
  Sex: Female

DRUGS (7)
  1. HALOPERIDOL DECANOATE [Suspect]
     Indication: SCHIZOAFFECTIVE DISORDER
  2. ZYPREXA [Concomitant]
  3. COGENTIN [Concomitant]
  4. DEPAKOTE ER [Concomitant]
  5. LEVAQUIN [Concomitant]
  6. ALBUTEROL [Concomitant]
  7. NEXIUM [Concomitant]

REACTIONS (2)
  - PERICARDIAL EFFUSION [None]
  - PERICARDITIS [None]
